FAERS Safety Report 17368151 (Version 1)
Quarter: 2020Q1

REPORT INFORMATION
  Report Type: Spontaneous
  Country: BR (occurrence: BR)
  Receive Date: 20200204
  Receipt Date: 20200204
  Transmission Date: 20200409
  Serious: Yes (Other)
  Sender: FDA-Public Use
  Company Number: BR-NOVOPROD-709986

PATIENT
  Sex: Male
  Weight: 110 kg

DRUGS (11)
  1. LOSARTAN POTASSIUM. [Concomitant]
     Active Substance: LOSARTAN POTASSIUM
     Indication: ARRHYTHMIA
     Dosage: 50 MG, 2 TABLETS  EVERY 12 HOURS
     Route: 065
  2. NIFEDIPINO [Concomitant]
     Active Substance: NIFEDIPINE
     Indication: ARRHYTHMIA
     Dosage: 10 MG, QD (1 TABLET  PER DAY)
     Route: 065
  3. DAPAGLIFLOZINE [Concomitant]
     Active Substance: DAPAGLIFLOZIN
     Indication: TYPE 2 DIABETES MELLITUS
     Dosage: 10 MG, 1 TABLET IN THE MORNING
     Route: 065
  4. PROPAFENONE. [Concomitant]
     Active Substance: PROPAFENONE
     Indication: ARRHYTHMIA
     Dosage: 300 MG, 1 TABLET EVERY 12 HOURS
     Route: 065
  5. XULTOPHY 100/3.6 [Suspect]
     Active Substance: INSULIN DEGLUDEC\LIRAGLUTIDE
     Indication: TYPE 2 DIABETES MELLITUS
     Dosage: 16 IU
     Route: 065
  6. CILOSTAZOL. [Concomitant]
     Active Substance: CILOSTAZOL
     Indication: ARRHYTHMIA
     Dosage: 50 MG, 1 TABLET EVERY 12 HOURS
     Route: 065
  7. PITAVASTATIN CALCIUM [Concomitant]
     Active Substance: PITAVASTATIN CALCIUM
     Indication: CARDIAC DISORDER
     Dosage: 4 MG, 1 TABLET AT NIGHT
     Route: 065
  8. FENOFIBRATE. [Concomitant]
     Active Substance: FENOFIBRATE
     Indication: CARDIAC DISORDER
     Dosage: 160 MG, 1 TABLET AT LUNCH
     Route: 065
  9. APIXABAN [Concomitant]
     Active Substance: APIXABAN
     Indication: ARRHYTHMIA
     Dosage: 5 MG, ONE TABLET EVERY 12 HOURS
     Route: 065
  10. NITRENDIPINO [Concomitant]
     Indication: ARRHYTHMIA
     Dosage: 10 MG, QD (1 TABLET PER DAY)
     Route: 065
  11. LEVOTHYROXINE SODIUM. [Concomitant]
     Active Substance: LEVOTHYROXINE SODIUM
     Indication: HYPOTHYROIDISM
     Dosage: 125 MG (1 TABLET PER DAY)
     Route: 065

REACTIONS (3)
  - Calculus bladder [Unknown]
  - Prostatomegaly [Unknown]
  - Hernia [Unknown]
